FAERS Safety Report 7831484-4 (Version None)
Quarter: 2011Q4

REPORT INFORMATION
  Report Type: 
  Country: None (occurrence: None)
  Receive Date: 20111021
  Receipt Date: 20111021
  Transmission Date: 20120403
  Serious: Yes (Other)
  Sender: FDA-Public Use
  Company Number: None

PATIENT
  Age: 35 Year
  Sex: Female

DRUGS (1)
  1. OVARIN [Suspect]
     Indication: INFERTILITY
     Dosage: 1-2 CAPSULES
     Route: 048
     Dates: start: 20110501, end: 20110723

REACTIONS (2)
  - BLOOD LEAD INCREASED [None]
  - MATERNAL EXPOSURE DURING PREGNANCY [None]
